FAERS Safety Report 20381142 (Version 5)
Quarter: 2022Q2

REPORT INFORMATION
  Report Type: Report from Study
  Country: BE (occurrence: None)
  Receive Date: 20220127
  Receipt Date: 20220606
  Transmission Date: 20220721
  Serious: Yes (Hospitalization)
  Sender: FDA-Public Use
  Company Number: BE-ROCHE-3007972

PATIENT
  Age: 76 Year
  Sex: Female
  Weight: 52.8 kg

DRUGS (7)
  1. TUCATINIB [Suspect]
     Active Substance: TUCATINIB
     Indication: Breast cancer metastatic
     Dosage: LAST DOSE PRIOR TO EVENT ONSET ON 12/JAN/2022
     Route: 048
     Dates: start: 20211026, end: 20220113
  2. ADO-TRASTUZUMAB EMTANSINE [Suspect]
     Active Substance: ADO-TRASTUZUMAB EMTANSINE
     Indication: Breast cancer metastatic
     Dosage: LAST DOSE PRIOR TO EVENT ONSET ON 28/DEC/2021
     Route: 042
     Dates: start: 20211026, end: 20220113
  3. XGEVA [Concomitant]
     Active Substance: DENOSUMAB
     Dates: start: 20201222
  4. CALCIUM CARBONATE\CHOLECALCIFEROL [Concomitant]
     Active Substance: CALCIUM CARBONATE\CHOLECALCIFEROL
     Dates: start: 20201208
  5. ACETAMINOPHEN [Concomitant]
     Active Substance: ACETAMINOPHEN
     Dates: start: 202012
  6. VITAPANTOL [Concomitant]
     Dates: start: 20211207
  7. METARELAX [Concomitant]
     Dates: start: 20211224

REACTIONS (2)
  - Cardiac failure [Not Recovered/Not Resolved]
  - Pneumonia [Recovered/Resolved]

NARRATIVE: CASE EVENT DATE: 20220113
